FAERS Safety Report 10357176 (Version 1)
Quarter: 2014Q3

REPORT INFORMATION
  Report Type: Report from Study
  Country: BR (occurrence: BR)
  Receive Date: 20140801
  Receipt Date: 20140801
  Transmission Date: 20150326
  Serious: Yes (Other)
  Sender: FDA-Public Use
  Company Number: BR-ROCHE-1441481

PATIENT
  Age: 45 Year
  Sex: Female
  Weight: 95 kg

DRUGS (5)
  1. XOLAIR [Suspect]
     Active Substance: OMALIZUMAB
     Indication: ASTHMA
     Route: 065
     Dates: start: 201310
  2. XOLAIR [Suspect]
     Active Substance: OMALIZUMAB
     Route: 065
     Dates: start: 20140703
  3. XOLAIR [Suspect]
     Active Substance: OMALIZUMAB
     Route: 065
     Dates: start: 20140508
  4. XOLAIR [Suspect]
     Active Substance: OMALIZUMAB
     Route: 065
     Dates: start: 20140605
  5. SERETIDE [Concomitant]
     Active Substance: FLUTICASONE FUROATE\SALMETEROL XINAFOATE

REACTIONS (10)
  - Hypersensitivity [Not Recovered/Not Resolved]
  - Pruritus [Unknown]
  - Erythema [Unknown]
  - Breast mass [Not Recovered/Not Resolved]
  - Asphyxia [Unknown]
  - Pruritus [Not Recovered/Not Resolved]
  - Headache [Recovered/Resolved]
  - Skin hypertrophy [Unknown]
  - Cardiac disorder [Unknown]
  - Chest discomfort [Recovered/Resolved]

NARRATIVE: CASE EVENT DATE: 20140508
